FAERS Safety Report 7039006-5 (Version None)
Quarter: 2010Q4

REPORT INFORMATION
  Report Type: 
  Country: None (occurrence: None)
  Receive Date: 20101012
  Receipt Date: 20100930
  Transmission Date: 20110411
  Serious: Yes (Hospitalization)
  Sender: FDA-Public Use
  Company Number: DE-ELI_LILLY_AND_COMPANY-DE201009008083

PATIENT
  Age: 75 Year
  Sex: Female

DRUGS (6)
  1. FORTEO [Suspect]
     Indication: OSTEOPOROSIS
     Dosage: UNK, DAILY (1/D)
     Route: 058
     Dates: start: 20090401, end: 20100806
  2. FORTEO [Suspect]
     Dosage: UNK, DAILY (1/D)
     Route: 058
     Dates: start: 20100813
  3. CALCIUM [Concomitant]
  4. VIT D [Concomitant]
  5. METAMIZOL [Concomitant]
  6. TILIDIN [Concomitant]

REACTIONS (4)
  - ANGINA PECTORIS [None]
  - PAIN IN EXTREMITY [None]
  - SCIATICA [None]
  - SENSORY LOSS [None]
